FAERS Safety Report 10090765 (Version 2)
Quarter: 2014Q2

REPORT INFORMATION
  Report Type: Spontaneous
  Country: US (occurrence: US)
  Receive Date: 20140421
  Receipt Date: 20140421
  Transmission Date: 20141212
  Serious: No
  Sender: FDA-Public Use
  Company Number: US-GILEAD-2012-0058775

PATIENT
  Sex: Female

DRUGS (3)
  1. LETAIRIS [Suspect]
     Indication: PULMONARY HYPERTENSION
     Dosage: 10 MG, UNK
     Route: 048
     Dates: start: 20120306
  2. LETAIRIS [Suspect]
     Indication: HEART VALVE REPLACEMENT
  3. TYVASO [Suspect]

REACTIONS (6)
  - Chest pain [Unknown]
  - Cough [Unknown]
  - Chest discomfort [Unknown]
  - Respiratory disorder [Unknown]
  - Dyspnoea [Unknown]
  - Fatigue [Unknown]
